FAERS Safety Report 11632089 (Version 1)
Quarter: 2015Q4

REPORT INFORMATION
  Report Type: Spontaneous
  Country: US (occurrence: None)
  Receive Date: 20151014
  Receipt Date: 20151014
  Transmission Date: 20160304
  Serious: Yes (Disabling, Other)
  Sender: FDA-Public Use
  Company Number: None

PATIENT
  Age: 74 Year
  Sex: Female
  Weight: 77.11 kg

DRUGS (5)
  1. LANTUS SOLOSTAR [Concomitant]
     Active Substance: INSULIN GLARGINE
  2. ATORVASTATIN [Concomitant]
     Active Substance: ATORVASTATIN
  3. METOPROLOL-SUCC ER [Concomitant]
  4. HUMALOG KWIKPEN [Suspect]
     Active Substance: INSULIN LISPRO
     Indication: BLOOD GLUCOSE ABNORMAL
     Dosage: 5-8-10 UNITS INSUL 3 TIMES A DAY INJECTION
     Dates: start: 201503, end: 201504
  5. ASPIRIN. [Concomitant]
     Active Substance: ASPIRIN

REACTIONS (8)
  - Pruritus generalised [None]
  - Pain [None]
  - Abdominal pain upper [None]
  - Mass [None]
  - Asthenia [None]
  - Varicose vein [None]
  - Erythema [None]
  - Swelling [None]

NARRATIVE: CASE EVENT DATE: 201503
